FAERS Safety Report 17798695 (Version 1)
Quarter: 2020Q2

REPORT INFORMATION
  Report Type: Spontaneous
  Country: ES (occurrence: ES)
  Receive Date: 20200518
  Receipt Date: 20200518
  Transmission Date: 20200714
  Serious: Yes (Other)
  Sender: FDA-Public Use
  Company Number: NVSC2020ES132064

PATIENT
  Age: 44 Year
  Sex: Female

DRUGS (1)
  1. CLOBETASOL PROPIONATE. [Suspect]
     Active Substance: CLOBETASOL PROPIONATE
     Indication: LICHEN PLANUS
     Route: 061

REACTIONS (6)
  - Swelling face [Recovering/Resolving]
  - Weight decreased [Recovering/Resolving]
  - Adrenal insufficiency [Recovered/Resolved]
  - Asthenia [Recovering/Resolving]
  - Hypertrichosis [Recovering/Resolving]
  - Product use in unapproved indication [Unknown]
